FAERS Safety Report 12599563 (Version 1)
Quarter: 2016Q3

REPORT INFORMATION
  Report Type: Report from Study
  Country: AR (occurrence: AR)
  Receive Date: 20160727
  Receipt Date: 20160727
  Transmission Date: 20161109
  Serious: Yes (Other)
  Sender: FDA-Public Use
  Company Number: PHHY2016AR101659

PATIENT
  Sex: Female

DRUGS (1)
  1. DIOVAN D [Suspect]
     Active Substance: HYDROCHLOROTHIAZIDE\VALSARTAN
     Indication: HYPERTENSION
     Dosage: 0.5 DF (160 UNITS NOT PROVIDED), BID (? A TABLET IN THE MORNING AND ? A TABLET IN THE AFTERNOON)
     Route: 065

REACTIONS (4)
  - Drug ineffective [Unknown]
  - Blood pressure fluctuation [Unknown]
  - Carotid artery disease [Unknown]
  - Wrong technique in product usage process [Unknown]
